FAERS Safety Report 5372629-8 (Version None)
Quarter: 2007Q2

REPORT INFORMATION
  Report Type: 
  Country: None (occurrence: None)
  Receive Date: 20070615
  Receipt Date: 20060904
  Transmission Date: 20071010
  Serious: Yes (Other)
  Sender: FDA-Public Use
  Company Number: 200610806US

PATIENT
  Age: 65 Year
  Sex: Male
  Weight: 74.5 kg

DRUGS (9)
  1. LANTUS [Suspect]
     Indication: DIABETES MELLITUS INSULIN-DEPENDENT
     Dosage: 17 U QPM
     Dates: start: 20060119, end: 20060120
  2. LANTUS [Suspect]
     Indication: DIABETES MELLITUS INSULIN-DEPENDENT
     Dosage: 17 U QPM
     Dates: start: 20060121
  3. OPTICLIK [Suspect]
     Indication: DIABETES MELLITUS INSULIN-DEPENDENT
     Dates: start: 20060119, end: 20060120
  4. CLOPIDOGREL (PLAVIX /01220701/) [Concomitant]
  5. ACETYLSALICYLIC ACID SRT [Concomitant]
  6. ALTACE [Concomitant]
  7. INSULIN (HUMALOG /00030501/) [Concomitant]
  8. ZOCOR [Concomitant]
  9. METOPROLOL SUCCINATE [Concomitant]

REACTIONS (1)
  - HYPERGLYCAEMIA [None]
